FAERS Safety Report 8422944-6 (Version None)
Quarter: 2012Q2

REPORT INFORMATION
  Report Type: 
  Country: None (occurrence: None)
  Receive Date: 20120608
  Receipt Date: 20120516
  Transmission Date: 20120825
  Serious: Yes (Hospitalization)
  Sender: FDA-Public Use
  Company Number: JP-GLAXOSMITHKLINE-B0802184A

PATIENT
  Sex: Male

DRUGS (5)
  1. ZYPREXA [Concomitant]
     Dosage: 2.5MG PER DAY
     Route: 048
  2. LENDORMIN [Concomitant]
     Route: 048
  3. LAMICTAL [Suspect]
     Indication: BIPOLAR DISORDER
     Dosage: 25MG PER DAY
     Route: 048
     Dates: start: 20120414, end: 20120427
  4. LAMICTAL [Suspect]
     Dosage: 50MG PER DAY
     Route: 048
     Dates: start: 20120428, end: 20120515
  5. LITHIUM CARBONATE [Concomitant]
     Route: 048

REACTIONS (4)
  - VIRAL RASH [None]
  - PRURITUS [None]
  - PYREXIA [None]
  - RASH [None]
